FAERS Safety Report 9104721 (Version 1)
Quarter: 2013Q1

REPORT INFORMATION
  Report Type: Report from Study
  Country: AU (occurrence: AU)
  Receive Date: 20130220
  Receipt Date: 20130220
  Transmission Date: 20140127
  Serious: Yes (Life-Threatening, Hospitalization, Other)
  Sender: FDA-Public Use
  Company Number: AU-PFIZER INC-2012085778

PATIENT
  Age: 50 Year
  Sex: Male
  Weight: 90.1 kg

DRUGS (7)
  1. TOFACITINIB CITRATE [Suspect]
     Indication: PSORIASIS
     Dosage: 10 MG, 2X/DAY
     Route: 048
     Dates: start: 20111021, end: 20120404
  2. ZOLOFT [Concomitant]
     Indication: DEPRESSION
     Dosage: 200 MG, 1X/DAY
     Route: 048
  3. LOSEC [Concomitant]
     Indication: GASTROOESOPHAGEAL REFLUX DISEASE
     Dosage: 20 MG, 1X/DAY
     Route: 048
  4. VOLTAREN [Concomitant]
     Indication: BACK PAIN
     Dosage: 7 TABLETS OF 25 MG
     Dates: start: 20120331, end: 20120331
  5. FEXOFENADINE [Concomitant]
     Dosage: UNK
  6. PANADOL [Concomitant]
     Indication: BACK PAIN
     Dosage: UNK
  7. NUROFEN [Concomitant]
     Indication: BACK PAIN
     Dosage: UNK

REACTIONS (1)
  - Pulmonary embolism [Recovering/Resolving]
